FAERS Safety Report 5231106-5 (Version None)
Quarter: 2007Q1

REPORT INFORMATION
  Report Type: 
  Country: None (occurrence: None)
  Receive Date: 20070206
  Receipt Date: 20070125
  Transmission Date: 20070707
  Serious: Yes (Hospitalization)
  Sender: FDA-Public Use
  Company Number: US-AMGEN-KDL201993

PATIENT
  Sex: Female
  Weight: 105 kg

DRUGS (18)
  1. EPOGEN [Suspect]
     Indication: DIALYSIS
  2. SENSIPAR [Concomitant]
     Indication: HYPERPARATHYROIDISM SECONDARY
     Route: 048
     Dates: start: 20050601
  3. ZYRTEC [Concomitant]
  4. ZINC [Concomitant]
  5. SINGULAIR [Concomitant]
  6. RITALIN [Concomitant]
  7. RISPERDAL [Concomitant]
  8. RENAGEL [Concomitant]
  9. PEPCID [Concomitant]
  10. LEVOXYL [Concomitant]
  11. IRON [Concomitant]
  12. FOLIC ACID [Concomitant]
  13. EFFEXOR [Concomitant]
  14. DETROL [Concomitant]
  15. DARVOCET-N 100 [Concomitant]
  16. VITAMIN B-12 [Concomitant]
  17. AMBIEN [Concomitant]
  18. ACETAMINOPHEN [Concomitant]

REACTIONS (4)
  - ADENOMA BENIGN [None]
  - IRON DEFICIENCY [None]
  - PARATHYROID TUMOUR [None]
  - THERAPEUTIC RESPONSE DECREASED [None]
